FAERS Safety Report 24199034 (Version 2)
Quarter: 2024Q3

REPORT INFORMATION
  Report Type: Spontaneous
  Country: US (occurrence: US)
  Receive Date: 20240812
  Receipt Date: 20240903
  Transmission Date: 20241017
  Serious: Yes (Hospitalization)
  Sender: BRISTOL MYERS SQUIBB
  Company Number: US-BRISTOL-MYERS SQUIBB COMPANY-2024-126237

PATIENT
  Age: 69 Year
  Sex: Male

DRUGS (2)
  1. LENALIDOMIDE [Suspect]
     Active Substance: LENALIDOMIDE
     Indication: Plasma cell myeloma
     Dosage: TAKE 1 CAPSULE (10MG TOTAL) BY MOUTH EVERY DAY FOR 14 DAYS, THEN HOLD FOR 7 DAYS. REPEAT EVERY 21 DA
     Route: 048
  2. LENALIDOMIDE [Suspect]
     Active Substance: LENALIDOMIDE
     Dosage: TAKE 1 CAPSULE (10MG TOTAL) BY MOUTH EVERY DAY FOR 14 DAYS, THEN HOLD FOR 7 DAYS. REPEAT EVERY 21 DA
     Route: 048

REACTIONS (6)
  - Fall [Recovered/Resolved]
  - Off label use [Unknown]
  - Fatigue [Not Recovered/Not Resolved]
  - Nausea [Not Recovered/Not Resolved]
  - Decreased appetite [Not Recovered/Not Resolved]
  - Diarrhoea [Not Recovered/Not Resolved]

NARRATIVE: CASE EVENT DATE: 20240801
